FAERS Safety Report 7816622-1 (Version None)
Quarter: 2011Q4

REPORT INFORMATION
  Report Type: 
  Country: None (occurrence: None)
  Receive Date: 20111017
  Receipt Date: 20111005
  Transmission Date: 20120403
  Serious: Yes (Death)
  Sender: FDA-Public Use
  Company Number: US-PFIZER INC-2011131441

PATIENT
  Sex: Female
  Weight: 120 kg

DRUGS (18)
  1. MICARDIS [Concomitant]
     Indication: HYPERTENSION
     Dosage: 80 MG, 1X/DAY
     Route: 048
     Dates: start: 20060101
  2. LYRICA [Concomitant]
     Indication: MUSCULOSKELETAL CHEST PAIN
  3. POTASSIUM [Concomitant]
     Indication: SUPPLEMENTATION THERAPY
     Dosage: 10 MEQ, 1X/DAY
     Route: 048
     Dates: start: 20091201
  4. PRAVASTATIN [Concomitant]
     Indication: HYPERLIPIDAEMIA
     Dosage: 40 MG, 1X/DAY
     Route: 048
     Dates: start: 20110606
  5. FENTANYL [Concomitant]
     Indication: MUSCULOSKELETAL CHEST PAIN
  6. MAGNESIUM OXIDE [Concomitant]
     Indication: HYPOMAGNESAEMIA
     Dosage: 400 MG, 2X/DAY
     Route: 048
     Dates: start: 20110527
  7. CRIZOTINIB [Suspect]
     Indication: NON-SMALL CELL LUNG CANCER
     Dosage: 250 MG, 2X/DAY
     Route: 048
     Dates: start: 20110527, end: 20110611
  8. MAXZIDE [Concomitant]
     Indication: HYPERTENSION
     Dosage: 1 DF (TABLET), 1X/DAY
     Route: 048
     Dates: start: 20091201
  9. LIDODERM [Concomitant]
     Indication: BACK PAIN
     Dosage: 5%, AS NEEDED
     Route: 061
     Dates: start: 20110513, end: 20110608
  10. OXYCODONE [Concomitant]
     Indication: BACK PAIN
     Dosage: 5 MG, AS NEEDED
     Route: 048
     Dates: start: 20110513
  11. OXYCODONE [Concomitant]
     Indication: MUSCULOSKELETAL CHEST PAIN
  12. LIDODERM [Concomitant]
     Indication: MUSCULOSKELETAL CHEST PAIN
  13. ZOLOFT [Concomitant]
     Indication: DEPRESSION
     Dosage: 75 MG, 1X/DAY
     Route: 048
     Dates: start: 20060101
  14. LYRICA [Concomitant]
     Indication: BACK PAIN
     Dosage: 150 MG, 2X/DAY
     Route: 048
     Dates: start: 20110513
  15. JANUMET [Concomitant]
     Indication: TYPE 2 DIABETES MELLITUS
     Dosage: 1 DF (TABLET), 2X/DAY
     Route: 048
     Dates: start: 20090101
  16. ATENOLOL [Concomitant]
     Indication: HYPERTENSION
     Dosage: 100 MG, 1X/DAY
     Route: 048
     Dates: start: 19910101
  17. SIMVASTATIN [Concomitant]
     Indication: HYPERLIPIDAEMIA
     Dosage: 40 MG, 1X/DAY
     Route: 048
     Dates: start: 20060101, end: 20110523
  18. FENTANYL [Concomitant]
     Indication: BACK PAIN
     Dosage: 25 UG, EVERY 72 HOURS
     Route: 061
     Dates: start: 20110608

REACTIONS (2)
  - DEATH [None]
  - SUDDEN DEATH [None]
